FAERS Safety Report 4413752-1 (Version None)
Quarter: 2004Q2

REPORT INFORMATION
  Report Type: 
  Country: None (occurrence: None)
  Receive Date: 20040630
  Receipt Date: 20040520
  Transmission Date: 20050107
  Serious: No
  Sender: FDA-Public Use
  Company Number: 04P-163-0261568-00

PATIENT
  Age: 56 Year
  Weight: 70.7611 kg

DRUGS (6)
  1. HUMIRA [Suspect]
     Indication: RHEUMATOID ARTHRITIS
     Dosage: 40 MG, 1 IN 2 WK, SUBCUTANEOUS
     Route: 058
     Dates: start: 20040201
  2. PREDNISONE [Concomitant]
  3. ROFECOXIB [Concomitant]
  4. CITALOPRAM HYDROBROMIDE [Concomitant]
  5. ACYCLOVIR [Concomitant]
  6. FAMOTIDINE [Concomitant]

REACTIONS (1)
  - DRUG INEFFECTIVE [None]
